FAERS Safety Report 9896373 (Version 1)
Quarter: 2014Q1

REPORT INFORMATION
  Report Type: Spontaneous
  Country: US (occurrence: US)
  Receive Date: 20140213
  Receipt Date: 20140213
  Transmission Date: 20141002
  Serious: No
  Sender: FDA-Public Use
  Company Number: US-BRISTOL-MYERS SQUIBB COMPANY-19099027

PATIENT
  Age: 57 Year
  Sex: Female

DRUGS (15)
  1. ABATACEPT SUBQ INJECTION 125MG/ML [Suspect]
     Indication: RHEUMATOID ARTHRITIS
     Dosage: 1DF:125MG/ML
     Route: 058
  2. CYMBALTA [Concomitant]
     Dosage: CAP
  3. AMBIEN [Concomitant]
     Dosage: TABS
  4. CELEBREX [Concomitant]
     Dosage: CAP
  5. TYLENOL [Concomitant]
  6. ZYRTEC [Concomitant]
  7. NEURONTIN [Concomitant]
  8. TRAZODONE HCL [Concomitant]
  9. VITAMIN E [Concomitant]
     Dosage: 1DF:400UNITS
  10. LEVOTHYROXIN [Concomitant]
  11. AMITRIPTYLINE [Concomitant]
  12. ALTACE [Concomitant]
  13. OMEGA [Concomitant]
  14. MULTIVITAMIN [Concomitant]
  15. B COMPLEX 100 [Concomitant]

REACTIONS (1)
  - Rheumatoid arthritis [Unknown]
